FAERS Safety Report 23693050 (Version 1)
Quarter: 2024Q2

REPORT INFORMATION
  Report Type: Spontaneous
  Country: US (occurrence: US)
  Receive Date: 20240401
  Receipt Date: 20240401
  Transmission Date: 20240716
  Serious: No
  Sender: FDA-Public Use
  Company Number: US-BIOVITRUM-2024-US-004879

PATIENT
  Age: 72 Year
  Sex: Male

DRUGS (1)
  1. KINERET [Suspect]
     Active Substance: ANAKINRA
     Indication: Product used for unknown indication
     Dosage: QD
     Route: 058
     Dates: start: 20230319

REACTIONS (3)
  - Influenza [Unknown]
  - Vomiting [Unknown]
  - Nasopharyngitis [Unknown]
